FAERS Safety Report 23208458 (Version 1)
Quarter: 2023Q4

REPORT INFORMATION
  Report Type: Spontaneous
  Country: US (occurrence: US)
  Receive Date: 20231121
  Receipt Date: 20231121
  Transmission Date: 20240109
  Serious: Yes (Hospitalization, Other)
  Sender: FDA-Public Use
  Company Number: US-AZURITY PHARMACEUTICALS, INC.-US-2023ARB004908

PATIENT
  Age: 69 Year
  Sex: Female

DRUGS (4)
  1. METHOTREXATE [Suspect]
     Active Substance: METHOTREXATE
     Indication: Pemphigoid
     Dosage: 15 MG, WEEKLY
  2. FOLIC ACID [Concomitant]
     Active Substance: FOLIC ACID
     Indication: Pemphigoid
     Dosage: 1 MG, QD (EXCEPT ON THE DAY OF TAKING METHOTREXATE)
  3. PREDNISONE [Concomitant]
     Active Substance: PREDNISONE
     Indication: Pemphigoid
     Dosage: TAPER
  4. PREDNISONE [Concomitant]
     Active Substance: PREDNISONE
     Dosage: 20 MG, QD

REACTIONS (1)
  - Hypersensitivity pneumonitis [Recovering/Resolving]
